FAERS Safety Report 5313150-2 (Version None)
Quarter: 2007Q2

REPORT INFORMATION
  Report Type: 
  Country: None (occurrence: None)
  Receive Date: 20070430
  Receipt Date: 20070413
  Transmission Date: 20071010
  Serious: Yes (Other)
  Sender: FDA-Public Use
  Company Number: US-PFIZER INC-2007033687

PATIENT
  Sex: Female
  Weight: 70.3 kg

DRUGS (11)
  1. LIPITOR [Suspect]
     Indication: BLOOD CHOLESTEROL INCREASED
  2. ZYRTEC [Concomitant]
  3. FLEXERIL [Concomitant]
  4. ZANAFLEX [Concomitant]
  5. TEMAZEPAM [Concomitant]
  6. AXERT [Concomitant]
  7. CELEXA [Concomitant]
  8. OXYCODONE HCL [Concomitant]
  9. PROPRANOLOL [Concomitant]
  10. SERAX [Concomitant]
  11. CELEBREX [Concomitant]

REACTIONS (5)
  - BLOOD CHOLESTEROL INCREASED [None]
  - BLOOD TRIGLYCERIDES INCREASED [None]
  - HYPOKINESIA [None]
  - MYALGIA [None]
  - PRECANCEROUS CELLS PRESENT [None]
